FAERS Safety Report 20469148 (Version 4)
Quarter: 2022Q1

REPORT INFORMATION
  Report Type: Spontaneous
  Country: JP (occurrence: JP)
  Receive Date: 20220214
  Receipt Date: 20220324
  Transmission Date: 20220424
  Serious: No
  Sender: FDA-Public Use
  Company Number: JP-GLAXOSMITHKLINE-JP2022JPN023731

PATIENT
  Sex: Female
  Weight: 65.8 kg

DRUGS (7)
  1. SOTROVIMAB [Suspect]
     Active Substance: SOTROVIMAB
     Indication: COVID-19
     Dosage: 500 MG/DAY
     Route: 041
     Dates: start: 20220206, end: 20220206
  2. CALCIUM CHLORIDE\POTASSIUM CHLORIDE\SODIUM ACETATE\SODIUM CHLORIDE [Concomitant]
     Active Substance: CALCIUM CHLORIDE\POTASSIUM CHLORIDE\SODIUM ACETATE\SODIUM CHLORIDE
     Indication: COVID-19
     Dosage: 500 TO 1500 ML PER DAY
     Route: 042
     Dates: start: 20220204, end: 20220208
  3. SOLDEM 3A [Concomitant]
     Active Substance: CARBOHYDRATES\POTASSIUM CHLORIDE\SODIUM CHLORIDE\SODIUM LACTATE
     Indication: COVID-19
     Dosage: 500 ML PER DAY
     Route: 042
     Dates: start: 20220206, end: 20220208
  4. CALONAL [Concomitant]
     Active Substance: ACETAMINOPHEN
     Indication: COVID-19
     Dosage: 500 MG PER DAY
     Route: 048
     Dates: start: 20220204, end: 20220205
  5. PRIMPERAN [Concomitant]
     Active Substance: METOCLOPRAMIDE HYDROCHLORIDE
     Indication: COVID-19
     Dosage: 10 MG PER DAY
     Route: 042
     Dates: start: 20220204, end: 20220207
  6. REBAMIPIDE TABLETS [Concomitant]
     Indication: COVID-19
     Dosage: 100 TO 200 MG PER DAY
     Route: 048
     Dates: start: 20220205, end: 20220208
  7. DEXTROMETHORPHAN HYDROBROMIDE [Concomitant]
     Active Substance: DEXTROMETHORPHAN HYDROBROMIDE
     Indication: COVID-19
     Dosage: 15 TO 30 MG PER DAY
     Route: 048
     Dates: start: 20220206, end: 20220208

REACTIONS (1)
  - Exposure during pregnancy [Unknown]
